FAERS Safety Report 9740170 (Version 1)
Quarter: 2013Q4

REPORT INFORMATION
  Report Type: Spontaneous
  Country: US (occurrence: US)
  Receive Date: 20131209
  Receipt Date: 20131209
  Transmission Date: 20140711
  Serious: Yes (Death)
  Sender: FDA-Public Use
  Company Number: US-PURDUE-USA-2013-0109288

PATIENT
  Age: 70 Year
  Sex: Male
  Weight: 49.89 kg

DRUGS (7)
  1. HYDROMORPHONE HCL LIQUID [Suspect]
     Indication: CANCER PAIN
     Dosage: UNK UNK, SEE TEXT
  2. LEVOTHYROXIN [Concomitant]
     Dosage: 88 MCG, UNK
  3. PHENERGAN                          /00488301/ [Concomitant]
     Dosage: 25 MG, UNK
  4. DEXAMETHASONE [Concomitant]
     Dosage: 4 MG, BID
  5. PHOSLO [Concomitant]
     Dosage: 1334 MG, BID
  6. FLUCONAZOLE [Concomitant]
     Dosage: 200 MG, UNK
  7. OXYCODONE / ACETAMINOPHEN [Concomitant]
     Dosage: 10/325 MG

REACTIONS (1)
  - Malignant neoplasm progression [Fatal]
